FAERS Safety Report 25469829 (Version 1)
Quarter: 2025Q2

REPORT INFORMATION
  Report Type: Spontaneous
  Country: US (occurrence: None)
  Receive Date: 20250623
  Receipt Date: 20250623
  Transmission Date: 20250716
  Serious: Yes (Hospitalization)
  Sender: FDA-CTU
  Company Number: None

PATIENT
  Age: 73 Year
  Sex: Male
  Weight: 90 kg

DRUGS (2)
  1. PROPOFOL [Suspect]
     Active Substance: PROPOFOL
     Dates: start: 20250512
  2. CLONAZEPAM [Concomitant]
     Active Substance: CLONAZEPAM
     Dates: start: 20250512

REACTIONS (2)
  - Sedation complication [None]
  - Endotracheal intubation [None]

NARRATIVE: CASE EVENT DATE: 20250512
